FAERS Safety Report 24689612 (Version 1)
Quarter: 2024Q4

REPORT INFORMATION
  Report Type: Spontaneous
  Country: IT (occurrence: IT)
  Receive Date: 20241203
  Receipt Date: 20241203
  Transmission Date: 20250115
  Serious: Yes (Other)
  Sender: RANBAXY
  Company Number: IT-MINISAL02-1007670

PATIENT
  Age: 38 Year
  Sex: Female
  Weight: 55 kg

DRUGS (5)
  1. SERTRALINE [Suspect]
     Active Substance: SERTRALINE HYDROCHLORIDE
     Indication: Adjustment disorder with depressed mood
     Dosage: START ON 8/31/24 WITH 25 MG, ON 9/2/24 GO TO 50 MG, TAKE IN THE MORNING AT 8 AM ON A FULL STOMACH
     Route: 048
     Dates: start: 20240831
  2. TRAZODONE HYDROCHLORIDE [Concomitant]
     Active Substance: TRAZODONE HYDROCHLORIDE
     Indication: Middle insomnia
     Dosage: 16 DROPS IN THE EVENING. WHEN SERTRALINE IS INTRODUCED, REDUCED TO 13 DROPS AFTER 2 DAYS, THEN TO 10
     Route: 048
     Dates: start: 20240510, end: 20240909
  3. ZOLPIDEM TARTRATE [Concomitant]
     Active Substance: ZOLPIDEM TARTRATE
     Indication: Insomnia
     Dosage: 5 MG THEN INCREASED TO 15 BEFORE GOING TO SLEEP, WITH NO BENEFIT ON INSOMNIA
     Route: 048
     Dates: start: 20240831, end: 20240918
  4. ESZOPICLONE [Concomitant]
     Active Substance: ESZOPICLONE
     Indication: Middle insomnia
     Dosage: 3 MG IN THE EVENING BEFORE GOING TO SLEEP FOR TWO WEEKS EVERY EVENING, THEN EVERY OTHER EVENING FOR
     Route: 048
     Dates: end: 20241017
  5. INDERAL [Concomitant]
     Active Substance: PROPRANOLOL HYDROCHLORIDE
     Indication: Tremor
     Dosage: 20 MG IN THE MORNING
     Route: 048

REACTIONS (6)
  - Serotonin syndrome [Recovered/Resolved]
  - Anxiety [Recovered/Resolved]
  - Tremor [Not Recovered/Not Resolved]
  - Hyperhidrosis [Recovered/Resolved]
  - Restlessness [Recovered/Resolved]
  - Agitation [Recovered/Resolved]

NARRATIVE: CASE EVENT DATE: 20240903
